FAERS Safety Report 13651926 (Version 5)
Quarter: 2017Q3

REPORT INFORMATION
  Report Type: Spontaneous
  Country: US (occurrence: US)
  Receive Date: 20170614
  Receipt Date: 20170907
  Transmission Date: 20171127
  Serious: Yes (Other)
  Sender: FDA-Public Use
  Company Number: US-SAOL THERAPEUTICS-2017SAO00885

PATIENT
  Age: 64 Year
  Sex: Female

DRUGS (10)
  1. MORPHINE [Suspect]
     Active Substance: MORPHINE
     Dosage: .243 MG, \DAY
     Route: 037
  2. COMPOUNDED BACLOFEN [Suspect]
     Active Substance: BACLOFEN
     Indication: RADICULOPATHY
     Dosage: 242.8 ?G, \DAY
     Route: 037
  3. CLONIDINE. [Suspect]
     Active Substance: CLONIDINE
     Dosage: 18.75 ?G, \DAY
     Route: 037
  4. CLONIDINE. [Suspect]
     Active Substance: CLONIDINE
     Dosage: 10 ?G, \DAY
     Route: 037
  5. CLONIDINE. [Suspect]
     Active Substance: CLONIDINE
     Dosage: 9.11 ?G, \DAY
     Route: 037
  6. MORPHINE [Suspect]
     Active Substance: MORPHINE
     Dosage: 0.5 MG, \DAY
     Route: 037
  7. COMPOUNDED BACLOFEN [Suspect]
     Active Substance: BACLOFEN
     Indication: SPINAL PAIN
     Dosage: 500.1 ?G, \DAY
     Route: 037
  8. MORPHINE [Suspect]
     Active Substance: MORPHINE
     Dosage: 0.266 MG, \DAY
     Route: 037
  9. COMPOUNDED BACLOFEN [Suspect]
     Active Substance: BACLOFEN
     Indication: PAIN
     Dosage: 266.7 ?G, \DAY
     Route: 037
  10. GABAPENTIN. [Concomitant]
     Active Substance: GABAPENTIN

REACTIONS (12)
  - Incoherent [Unknown]
  - Drug ineffective for unapproved indication [Not Recovered/Not Resolved]
  - Occipital neuralgia [Recovering/Resolving]
  - Myofascial pain syndrome [Unknown]
  - Device infusion issue [Recovered/Resolved]
  - Migraine [Not Recovered/Not Resolved]
  - Sluggishness [Unknown]
  - Pain [Not Recovered/Not Resolved]
  - Cervicogenic headache [Not Recovered/Not Resolved]
  - Muscle spasms [Not Recovered/Not Resolved]
  - Lethargy [Unknown]
  - Overdose [Unknown]

NARRATIVE: CASE EVENT DATE: 20170511
